FAERS Safety Report 7096116-4 (Version None)
Quarter: 2010Q4

REPORT INFORMATION
  Report Type: 
  Country: None (occurrence: None)
  Receive Date: 20101103
  Receipt Date: 20101020
  Transmission Date: 20110411
  Serious: Yes (Disabling)
  Sender: FDA-Public Use
  Company Number: 1000017014

PATIENT
  Age: 75 Year
  Sex: Female

DRUGS (7)
  1. ESCITALOPRAM [Suspect]
     Dosage: ORAL ; (5 MG,1 IN 1 WK),ORAL
     Route: 048
     Dates: end: 20100630
  2. ESCITALOPRAM [Suspect]
     Dosage: ORAL ; (5 MG,1 IN 1 WK),ORAL
     Route: 048
     Dates: start: 20030626
  3. CHLORPHENAMINE (CHLORPHENAMINE MALEATE) (CHLORPHENAMINE MALEATE) [Concomitant]
  4. ASPIRIN [Concomitant]
  5. QUININE (QUININE SULPHATE) (QUININE SULPHATE) [Concomitant]
  6. SIMVASTATIN [Concomitant]
  7. VENTOLIN (SALBUTAMOL SULPHATE) (SALBUTAMOL SULPHATE) [Concomitant]

REACTIONS (4)
  - NEURALGIA [None]
  - PARAESTHESIA [None]
  - TRIGEMINAL NEURALGIA [None]
  - WITHDRAWAL SYNDROME [None]
